FAERS Safety Report 10263899 (Version 1)
Quarter: 2014Q2

REPORT INFORMATION
  Report Type: Spontaneous
  Country: US (occurrence: US)
  Receive Date: 20140627
  Receipt Date: 20140627
  Transmission Date: 20141212
  Serious: Yes (Hospitalization)
  Sender: FDA-Public Use
  Company Number: US-ASTRAZENECA-2014SE45969

PATIENT
  Sex: Female

DRUGS (3)
  1. ACCOLATE [Suspect]
     Route: 048
  2. ACCOLATE [Suspect]
     Dosage: GENERIC
     Route: 048
  3. OTHER MEDICATIONS [Concomitant]

REACTIONS (4)
  - Asthma [Unknown]
  - Dyspnoea [Not Recovered/Not Resolved]
  - Abdominal pain upper [Unknown]
  - Therapeutic response changed [Unknown]
